FAERS Safety Report 10021243 (Version 1)
Quarter: 2014Q1

REPORT INFORMATION
  Report Type: Spontaneous
  Country: US (occurrence: None)
  Receive Date: 20140318
  Receipt Date: 20140318
  Transmission Date: 20141002
  Serious: Yes (Hospitalization)
  Sender: FDA-Public Use
  Company Number: None

PATIENT
  Age: 66 Year
  Sex: Male
  Weight: 78.6 kg

DRUGS (2)
  1. WARFARIN [Suspect]
     Indication: ATRIAL FLUTTER
     Dosage: MG  PO
     Route: 048
     Dates: start: 20131213
  2. ENOXAPARIN [Suspect]
     Route: 058
     Dates: start: 20130306, end: 20140310

REACTIONS (2)
  - Lower gastrointestinal haemorrhage [None]
  - Haemoglobin decreased [None]
